FAERS Safety Report 8975247 (Version 1)
Quarter: 2012Q4

REPORT INFORMATION
  Report Type: 
  Country: PA (occurrence: PA)
  Receive Date: 20121219
  Receipt Date: 20121219
  Transmission Date: 20130627
  Serious: Yes (Other)
  Sender: FDA-Public Use
  Company Number: PHHY2012PA116700

PATIENT
  Age: 47 Year
  Sex: Male

DRUGS (3)
  1. CO-DIOVAN [Suspect]
     Indication: HYPERTENSION
     Dosage: 1 DF, QD (valsartan 320mg and hydrochlorothiazide 12.5mg)
     Route: 048
  2. CO-DIOVAN [Suspect]
     Dosage: 2 DF, QD (valsartan 320mg and hydrochlorothiazide 12.5mg)
     Route: 048
  3. JANUMET [Concomitant]
     Indication: DIABETES MELLITUS

REACTIONS (4)
  - Overdose [Recovered/Resolved]
  - Hypertension [Recovered/Resolved]
  - Bradycardia [Recovered/Resolved]
  - Somnolence [Recovered/Resolved]
